FAERS Safety Report 8308376-X (Version None)
Quarter: 2012Q2

REPORT INFORMATION
  Report Type: 
  Country: None (occurrence: None)
  Receive Date: 20120424
  Receipt Date: 20120416
  Transmission Date: 20120825
  Serious: Yes (Hospitalization, Other)
  Sender: FDA-Public Use
  Company Number: US-VERTEX PHARMACEUTICALS INC.-AE-2012-004447

PATIENT
  Sex: Female
  Weight: 63.56 kg

DRUGS (4)
  1. RIBAVIRIN [Concomitant]
     Indication: HEPATITIS C
     Dates: start: 20120113, end: 20120304
  2. INCIVEK [Suspect]
     Indication: HEPATITIS C
     Route: 048
     Dates: start: 20120113, end: 20120301
  3. PEGASYS [Concomitant]
     Indication: HEPATITIS C
     Route: 058
     Dates: start: 20120113
  4. RIBAVIRIN [Concomitant]
     Route: 048
     Dates: start: 20120305

REACTIONS (4)
  - INSOMNIA [None]
  - RASH GENERALISED [None]
  - ANAEMIA [None]
  - DIARRHOEA [None]
